FAERS Safety Report 10006927 (Version 1)
Quarter: 2014Q1

REPORT INFORMATION
  Report Type: Spontaneous
  Country: US (occurrence: US)
  Receive Date: 20140313
  Receipt Date: 20140313
  Transmission Date: 20141002
  Serious: No
  Sender: FDA-Public Use
  Company Number: US-GILEAD-2013-0067315

PATIENT
  Sex: Female

DRUGS (9)
  1. LETAIRIS [Suspect]
     Indication: PRODUCT USED FOR UNKNOWN INDICATION
     Dosage: 5 MG, QD
     Route: 048
     Dates: start: 20120824, end: 20121213
  2. QUERCETIN [Concomitant]
  3. PREDNISONE [Concomitant]
  4. IMURAN                             /00001501/ [Concomitant]
  5. ATROVENT [Concomitant]
  6. FOSAMAX [Concomitant]
  7. CODEINE/PROMETHAZINE [Concomitant]
  8. VITAMIN D3 [Concomitant]
  9. CALCIUM [Concomitant]

REACTIONS (1)
  - Drug ineffective [Unknown]
